FAERS Safety Report 25670054 (Version 1)
Quarter: 2025Q3

REPORT INFORMATION
  Report Type: Spontaneous
  Country: US (occurrence: None)
  Receive Date: 20250811
  Receipt Date: 20250811
  Transmission Date: 20251021
  Serious: Yes (Death)
  Sender: FDA-CTU
  Company Number: None

PATIENT
  Age: 79 Year
  Sex: Male

DRUGS (1)
  1. DASATINIB [Suspect]
     Active Substance: DASATINIB
     Indication: Renal cancer
     Dosage: 80 MG DAILY ORAL
     Route: 048
     Dates: start: 20241029

REACTIONS (1)
  - Illness [None]

NARRATIVE: CASE EVENT DATE: 20250705
